FAERS Safety Report 16691570 (Version 4)
Quarter: 2019Q3

REPORT INFORMATION
  Report Type: Spontaneous
  Country: US (occurrence: US)
  Receive Date: 20190812
  Receipt Date: 20190910
  Transmission Date: 20191004
  Serious: Yes (Hospitalization)
  Sender: FDA-Public Use
  Company Number: US-HORIZON-PRO-0161-2019

PATIENT
  Age: 10 Year
  Sex: Male

DRUGS (7)
  1. SODIUM [Concomitant]
     Active Substance: SODIUM
  2. PHOSPHORUS [Concomitant]
     Active Substance: PHOSPHORUS
     Indication: RENAL TUBULAR ACIDOSIS
  3. PROCYSBI [Suspect]
     Active Substance: CYSTEAMINE BITARTRATE
     Indication: CYSTINOSIS
     Dosage: TAKE 9 CAPSULES BY MOUTH EVERY 12 HOURS. TOTAL DAILY DOSE IS 1350 MG
     Route: 048
  4. POTASSIUM [Concomitant]
     Active Substance: POTASSIUM
     Indication: RENAL TUBULAR ACIDOSIS
  5. CYSTINE EYE DROPS [Concomitant]
  6. GROWTH HORMONE [Concomitant]
     Active Substance: SOMATROPIN
     Dosage: EVERY EVENING
  7. VITAMINS [Concomitant]
     Active Substance: VITAMINS

REACTIONS (6)
  - Appendicectomy [Recovered/Resolved]
  - Diarrhoea haemorrhagic [Recovering/Resolving]
  - Vomiting [Recovered/Resolved]
  - Product dose omission [Unknown]
  - Appendicitis [Recovered/Resolved]
  - Clostridium difficile infection [Recovering/Resolving]

NARRATIVE: CASE EVENT DATE: 2019
